FAERS Safety Report 5130072-0 (Version None)
Quarter: 2006Q4

REPORT INFORMATION
  Report Type: 
  Country: None (occurrence: None)
  Receive Date: 20061013
  Receipt Date: 20060926
  Transmission Date: 20070319
  Serious: Yes (Hospitalization)
  Sender: FDA-Public Use
  Company Number: FR200605001099

PATIENT
  Age: 72 Year
  Sex: Female
  Weight: 45 kg

DRUGS (5)
  1. FORTEO [Suspect]
     Indication: OSTEOPOROSIS
     Dosage: 20 UG, DAILY (1/D), SUBCUTANEOUS
     Route: 058
     Dates: start: 20060412, end: 20060530
  2. FORTEO PEN (FORTEO PEN) PEN, DISPOSABLE [Concomitant]
  3. CALCIDOSE VITAMIN D (CALCIUM CARBONATE, COLECALCIFEROL) [Concomitant]
  4. DURAGESIC-100 [Concomitant]
  5. FORLAX (MARCROGOL) [Concomitant]

REACTIONS (5)
  - ANAEMIA [None]
  - BONE PAIN [None]
  - CONDITION AGGRAVATED [None]
  - GENERAL PHYSICAL HEALTH DETERIORATION [None]
  - MULTIPLE MYELOMA [None]
